FAERS Safety Report 9692878 (Version 1)
Quarter: 2013Q4

REPORT INFORMATION
  Report Type: Spontaneous
  Country: US (occurrence: None)
  Receive Date: 20131114
  Receipt Date: 20131114
  Transmission Date: 20140711
  Serious: Yes (Death)
  Sender: FDA-Public Use
  Company Number: None

PATIENT
  Age: 83 Year
  Sex: Male
  Weight: 67.13 kg

DRUGS (1)
  1. DECITABINE [Suspect]
     Indication: ACUTE MYELOID LEUKAEMIA
     Dosage: 20MG/M2;QDX10; 28DAY CYC
     Dates: start: 20130623, end: 20131110

REACTIONS (4)
  - Dyspnoea [None]
  - Abdominal pain upper [None]
  - Back pain [None]
  - Sepsis [None]
